FAERS Safety Report 5842638-0 (Version None)
Quarter: 2008Q3

REPORT INFORMATION
  Report Type: 
  Country: None (occurrence: None)
  Receive Date: 20080808
  Receipt Date: 20080725
  Transmission Date: 20090109
  Serious: Yes (Other)
  Sender: FDA-Public Use
  Company Number: TRP_05833_2008

PATIENT
  Age: 38 Year
  Sex: Female

DRUGS (3)
  1. RIBAVIRIN [Suspect]
     Indication: HEPATITIS C VIRUS TEST
     Dosage: (DF ORAL)
     Route: 048
     Dates: end: 20071201
  2. COCAINE [Concomitant]
  3. LORATADINE [Concomitant]

REACTIONS (2)
  - ALPHA 1 FOETOPROTEIN AMNIOTIC FLUID ABNORMAL [None]
  - DRUG EXPOSURE DURING PREGNANCY [None]
